FAERS Safety Report 13414810 (Version 2)
Quarter: 2017Q2

REPORT INFORMATION
  Report Type: Spontaneous
  Country: US (occurrence: US)
  Receive Date: 20170407
  Receipt Date: 20170414
  Transmission Date: 20170830
  Serious: No
  Sender: FDA-Public Use
  Company Number: US-GLAXOSMITHKLINE-US2017045713

PATIENT
  Sex: Female

DRUGS (1)
  1. FLONASE [Suspect]
     Active Substance: FLUTICASONE PROPIONATE
     Indication: NASAL INFLAMMATION
     Dosage: 2 DF, UNK, ONCE

REACTIONS (8)
  - Drug ineffective for unapproved indication [Unknown]
  - Nervousness [Unknown]
  - Insomnia [Unknown]
  - Adverse reaction [Unknown]
  - Off label use [Unknown]
  - Irritability [Unknown]
  - Malaise [Unknown]
  - Adverse event [Unknown]
